FAERS Safety Report 23818898 (Version 1)
Quarter: 2024Q2

REPORT INFORMATION
  Report Type: Spontaneous
  Country: IT (occurrence: IT)
  Receive Date: 20240506
  Receipt Date: 20240506
  Transmission Date: 20240716
  Serious: Yes (Hospitalization, Other)
  Sender: FDA-Public Use
  Company Number: IT-MINISAL02-981077

PATIENT
  Age: 75 Year
  Sex: Male
  Weight: 68 kg

DRUGS (4)
  1. ETHAMBUTOL [Suspect]
     Active Substance: ETHAMBUTOL HYDROCHLORIDE
     Indication: Tuberculosis
     Dosage: 1200 MG, QD, 400 MG: 3 TABS A DAY
     Route: 048
     Dates: start: 20240209, end: 20240308
  2. RIFAMPIN [Suspect]
     Active Substance: RIFAMPIN
     Indication: Tuberculosis
     Dosage: 300 MG, QD
     Route: 048
     Dates: start: 20240209, end: 20240308
  3. ISONIAZID [Suspect]
     Active Substance: ISONIAZID
     Indication: Tuberculosis
     Dosage: 300 MG, QD
     Route: 048
     Dates: start: 20240209, end: 20240308
  4. PYRIDOXINE HYDROCHLORIDE [Concomitant]
     Active Substance: PYRIDOXINE HYDROCHLORIDE
     Indication: Vitamin supplementation
     Dosage: 1 DF, QD
     Route: 048
     Dates: start: 20240209

REACTIONS (6)
  - Alanine aminotransferase increased [Recovered/Resolved]
  - Blood alkaline phosphatase increased [Recovering/Resolving]
  - Gamma-glutamyltransferase increased [Recovered/Resolved]
  - Acute kidney injury [Unknown]
  - Aspartate aminotransferase increased [Recovered/Resolved]
  - Biliary dilatation [Recovering/Resolving]

NARRATIVE: CASE EVENT DATE: 20240201
